FAERS Safety Report 7215817-8 (Version None)
Quarter: 2011Q1

REPORT INFORMATION
  Report Type: 
  Country: None (occurrence: None)
  Receive Date: 20110107
  Receipt Date: 20101229
  Transmission Date: 20110831
  Serious: Yes (Other)
  Sender: FDA-Public Use
  Company Number: US-PFIZER INC-2010068922

PATIENT
  Sex: Female
  Weight: 54.43 kg

DRUGS (9)
  1. AMARYL [Concomitant]
     Dosage: 4 MG, UNK
  2. SITAGLIPTIN [Concomitant]
     Dosage: UNK
  3. PROCARDIA XL [Concomitant]
     Dosage: 30 MG, UNK
  4. GLUCOPHAGE [Concomitant]
     Dosage: 800 MG, UNK
  5. CLARITIN [Concomitant]
     Dosage: UNK
  6. SYNTHROID [Concomitant]
     Dosage: UNK
  7. LIPITOR [Concomitant]
     Dosage: UNK
  8. LYRICA [Suspect]
     Indication: NEURALGIA
     Dosage: 75 MG, 1X/DAY
     Route: 048
     Dates: start: 20100525, end: 20100525
  9. LANOXIN [Concomitant]
     Dosage: UNK

REACTIONS (3)
  - DIZZINESS [None]
  - HEART RATE INCREASED [None]
  - HYPERTENSION [None]
